FAERS Safety Report 9100285 (Version 2)
Quarter: 2013Q2

REPORT INFORMATION
  Report Type: Report from Study
  Country: DE (occurrence: DE)
  Receive Date: 20130215
  Receipt Date: 20130401
  Transmission Date: 20140414
  Serious: Yes (Death, Hospitalization, Other)
  Sender: FDA-Public Use
  Company Number: DE-ACTELION-A-US2013-77723

PATIENT
  Age: 72 Year
  Sex: Male

DRUGS (1)
  1. VENTAVIS [Suspect]
     Indication: PULMONARY ARTERIAL HYPERTENSION
     Dosage: 5 ?G,  6 TIMES DAILY
     Route: 055
     Dates: start: 20120606, end: 20130210

REACTIONS (5)
  - Cardiac failure [Fatal]
  - Dyspnoea [Fatal]
  - Haemoptysis [Unknown]
  - Haemoglobin decreased [Unknown]
  - Epistaxis [Unknown]
